FAERS Safety Report 18546013 (Version 1)
Quarter: 2020Q4

REPORT INFORMATION
  Report Type: Report from Study
  Country: US (occurrence: US)
  Receive Date: 20201125
  Receipt Date: 20201125
  Transmission Date: 20210114
  Serious: Yes (Other)
  Sender: FDA-Public Use
  Company Number: US-GILEAD-2020-0505632

PATIENT
  Age: 43 Year
  Sex: Male

DRUGS (7)
  1. RITUXIMAB. [Concomitant]
     Active Substance: RITUXIMAB
  2. ETOPOSIDE. [Concomitant]
     Active Substance: ETOPOSIDE
  3. AXICABTAGENE CILOLEUCEL [Suspect]
     Active Substance: AXICABTAGENE CILOLEUCEL
     Indication: B-CELL LYMPHOMA
     Route: 042
  4. AXICABTAGENE CILOLEUCEL [Suspect]
     Active Substance: AXICABTAGENE CILOLEUCEL
     Indication: LYMPHOMA TRANSFORMATION
  5. CARBOPLATIN. [Concomitant]
     Active Substance: CARBOPLATIN
  6. IFOSFAMIDE. [Concomitant]
     Active Substance: IFOSFAMIDE
  7. POLATUZUMAB VEDOTIN. [Concomitant]
     Active Substance: POLATUZUMAB VEDOTIN

REACTIONS (1)
  - B-cell lymphoma [Unknown]
